FAERS Safety Report 12481574 (Version 2)
Quarter: 2016Q3

REPORT INFORMATION
  Report Type: Report from Study
  Country: US (occurrence: US)
  Receive Date: 20160620
  Receipt Date: 20160815
  Transmission Date: 20161109
  Serious: Yes (Death, Other)
  Sender: FDA-Public Use
  Company Number: US-GILEAD-2016-0219773

PATIENT
  Age: 71 Year
  Sex: Female
  Weight: 37.64 kg

DRUGS (10)
  1. DIGOXIN. [Concomitant]
     Active Substance: DIGOXIN
  2. AMBRISENTAN [Suspect]
     Active Substance: AMBRISENTAN
     Indication: PULMONARY ARTERIAL HYPERTENSION
     Dosage: 10 MG, QD
     Route: 048
     Dates: start: 20120719
  3. ADCIRCA [Concomitant]
     Active Substance: TADALAFIL
  4. LASIX [Concomitant]
     Active Substance: FUROSEMIDE
  5. K-DUR [Concomitant]
     Active Substance: POTASSIUM CHLORIDE
  6. AMBRISENTAN [Suspect]
     Active Substance: AMBRISENTAN
     Indication: CREST SYNDROME
  7. PLAQUENIL                          /00072602/ [Concomitant]
     Active Substance: HYDROXYCHLOROQUINE DIPHOSPHATE
  8. COUMADIN [Concomitant]
     Active Substance: WARFARIN SODIUM
  9. POTASSIUM CHLORIDE. [Concomitant]
     Active Substance: POTASSIUM CHLORIDE
  10. ALDACTONE [Concomitant]
     Active Substance: SPIRONOLACTONE

REACTIONS (2)
  - Right ventricular failure [Fatal]
  - Pulmonary hypertension [Fatal]

NARRATIVE: CASE EVENT DATE: 20160612
